FAERS Safety Report 23795528 (Version 1)
Quarter: 2024Q2

REPORT INFORMATION
  Report Type: Spontaneous
  Country: US (occurrence: US)
  Receive Date: 20240429
  Receipt Date: 20240429
  Transmission Date: 20240715
  Serious: Yes (Other)
  Sender: FDA-Public Use
  Company Number: US-MYLANLABS-2024M1036639

PATIENT
  Age: 17 Year
  Sex: Female

DRUGS (3)
  1. ESTRADIOL [Suspect]
     Active Substance: ESTRADIOL
     Indication: Primary hypogonadism
     Dosage: UNK
     Route: 065
  2. ETHINYL ESTRADIOL\NORETHINDRONE [Suspect]
     Active Substance: ETHINYL ESTRADIOL\NORETHINDRONE
     Indication: Primary hypogonadism
     Dosage: UNK; 1/20
     Route: 065
  3. CONJUGATED ESTROGENS [Suspect]
     Active Substance: ESTROGENS, CONJUGATED
     Indication: Primary hypogonadism
     Dosage: UNK
     Route: 048

REACTIONS (2)
  - Change in seizure presentation [Recovering/Resolving]
  - Off label use [Unknown]
